FAERS Safety Report 20034217 (Version 1)
Quarter: 2021Q4

REPORT INFORMATION
  Report Type: Spontaneous
  Country: DE (occurrence: DE)
  Receive Date: 20211104
  Receipt Date: 20211104
  Transmission Date: 20220304
  Serious: Yes (Other)
  Sender: FDA-Public Use
  Company Number: DE-PFIZER INC-202101447747

PATIENT
  Age: 16 Year
  Sex: Male

DRUGS (2)
  1. SIROLIMUS [Suspect]
     Active Substance: SIROLIMUS
     Indication: Splenomegaly
     Dosage: UNK
  2. SIROLIMUS [Suspect]
     Active Substance: SIROLIMUS
     Indication: Lymphadenopathy

REACTIONS (4)
  - Autoimmune haemolytic anaemia [Unknown]
  - Toxicity to various agents [Unknown]
  - Mouth ulceration [Unknown]
  - Off label use [Unknown]
